FAERS Safety Report 7906127-1 (Version None)
Quarter: 2011Q4

REPORT INFORMATION
  Report Type: 
  Country: None (occurrence: None)
  Receive Date: 20111110
  Receipt Date: 20111108
  Transmission Date: 20120403
  Serious: Yes (Hospitalization)
  Sender: FDA-Public Use
  Company Number: DE-SANOFI-AVENTIS-2011SA053760

PATIENT
  Age: 76 Year
  Sex: Male
  Weight: 90 kg

DRUGS (7)
  1. GRANISETRON [Concomitant]
     Indication: PREMEDICATION
     Route: 042
     Dates: start: 20110616, end: 20110616
  2. CLEMASTINE FUMARATE [Concomitant]
     Indication: PREMEDICATION
     Route: 042
     Dates: start: 20110616, end: 20110616
  3. JEVTANA KIT [Suspect]
     Route: 051
     Dates: start: 20110616, end: 20110616
  4. RANITIDINE [Concomitant]
     Indication: PREMEDICATION
     Route: 042
     Dates: start: 20110616, end: 20110616
  5. PREDNISOLONE [Concomitant]
     Route: 048
  6. JEVTANA KIT [Suspect]
     Indication: PROSTATE CANCER METASTATIC
     Route: 051
     Dates: start: 20110101, end: 20110101
  7. DEXAMETHASONE [Concomitant]
     Indication: PREMEDICATION
     Route: 042
     Dates: start: 20110616, end: 20110616

REACTIONS (5)
  - DISORIENTATION [None]
  - NEUROTOXICITY [None]
  - DELIRIUM [None]
  - CONFUSIONAL STATE [None]
  - HALLUCINATION [None]
